FAERS Safety Report 4903114-2 (Version None)
Quarter: 2006Q1

REPORT INFORMATION
  Report Type: 
  Country: None (occurrence: None)
  Receive Date: 20060207
  Receipt Date: 20060129
  Transmission Date: 20060701
  Serious: Yes (Death)
  Sender: FDA-Public Use
  Company Number: EG-MERCK-0602USA00259

PATIENT
  Age: 90 Year
  Sex: Male

DRUGS (2)
  1. PRIMAXIN [Suspect]
     Indication: RESPIRATORY FAILURE
     Route: 042
     Dates: start: 20051030, end: 20051106
  2. CEFOPERAZONE [Concomitant]
     Route: 065
     Dates: start: 20051020, end: 20051029

REACTIONS (1)
  - DEATH [None]
